FAERS Safety Report 16269094 (Version 1)
Quarter: 2019Q2

REPORT INFORMATION
  Report Type: Report from Study
  Country: US (occurrence: US)
  Receive Date: 20190503
  Receipt Date: 20190503
  Transmission Date: 20190711
  Serious: Yes (Other)
  Sender: FDA-Public Use
  Company Number: US-ROCHE-2311932

PATIENT
  Sex: Female

DRUGS (11)
  1. TRASTUZUMAB EMTANSINE [Suspect]
     Active Substance: ADO-TRASTUZUMAB EMTANSINE
     Indication: HER-2 POSITIVE BREAST CANCER
     Route: 065
  2. CYCLOPHOSPHAMIDE. [Concomitant]
     Active Substance: CYCLOPHOSPHAMIDE
  3. CAPECITABINE. [Concomitant]
     Active Substance: CAPECITABINE
     Route: 048
  4. PERTUZUMAB. [Concomitant]
     Active Substance: PERTUZUMAB
     Route: 065
  5. TRASTUZUMAB. [Concomitant]
     Active Substance: TRASTUZUMAB
     Route: 065
  6. ANASTROZOLE. [Concomitant]
     Active Substance: ANASTROZOLE
  7. LAPATINIB [Concomitant]
     Active Substance: LAPATINIB
  8. ERIBULIN [Concomitant]
     Active Substance: ERIBULIN
  9. EVEROLIMUS. [Concomitant]
     Active Substance: EVEROLIMUS
  10. PACLITAXEL. [Concomitant]
     Active Substance: PACLITAXEL
  11. DOXORUBICIN [Concomitant]
     Active Substance: DOXORUBICIN

REACTIONS (1)
  - Radiation necrosis [Unknown]
